FAERS Safety Report 9303900 (Version 1)
Quarter: 2013Q2

REPORT INFORMATION
  Report Type: Spontaneous
  Country: GB (occurrence: GB)
  Receive Date: 20130522
  Receipt Date: 20130522
  Transmission Date: 20140414
  Serious: Yes (Life-Threatening, Other)
  Sender: FDA-Public Use
  Company Number: GB-ROXANE LABORATORIES, INC.-2013-RO-00796RO

PATIENT
  Age: 72 Year
  Sex: Female

DRUGS (11)
  1. CLARITHROMYCIN [Suspect]
     Indication: PLEURAL EFFUSION
     Dosage: 1000 MG
     Route: 048
     Dates: start: 20110607
  2. FENTANYL [Suspect]
     Indication: BONE PAIN
     Route: 062
  3. CANDESARTAN [Concomitant]
  4. DOXAZOSIN [Concomitant]
  5. ZOPICLONE [Concomitant]
  6. AMITRIPTYLINE [Concomitant]
  7. SEVELAMER [Concomitant]
  8. TAMOXIFEN [Concomitant]
  9. DEXAMETHASONE [Concomitant]
  10. PARACETAMOL [Concomitant]
  11. IBUPROFEN [Concomitant]

REACTIONS (9)
  - Drug interaction [Recovered/Resolved]
  - Respiratory arrest [Recovered/Resolved]
  - Respiratory failure [Recovered/Resolved]
  - Altered state of consciousness [Recovered/Resolved]
  - Hypotension [Recovered/Resolved]
  - Vomiting [Recovered/Resolved]
  - Feeling abnormal [Recovered/Resolved]
  - Dysarthria [Recovered/Resolved]
  - Fatigue [Recovered/Resolved]
